FAERS Safety Report 21253861 (Version 1)
Quarter: 2022Q3

REPORT INFORMATION
  Report Type: Spontaneous
  Country: FI (occurrence: FI)
  Receive Date: 20220825
  Receipt Date: 20220825
  Transmission Date: 20221026
  Serious: Yes (Hospitalization, Disabling, Other)
  Sender: FDA-Public Use
  Company Number: FI-009507513-1010FIN00028

PATIENT
  Age: 73 Year
  Sex: Female

DRUGS (2)
  1. EZETIMIBE\SIMVASTATIN [Suspect]
     Active Substance: EZETIMIBE\SIMVASTATIN
     Indication: Hypercholesterolaemia
     Dosage: THREE DAYS/TABLET
     Route: 048
     Dates: start: 200801, end: 200801
  2. BETHANECHOL CHLORIDE [Suspect]
     Active Substance: BETHANECHOL CHLORIDE
     Indication: Hypercholesterolaemia
     Dosage: UNK
     Route: 048

REACTIONS (37)
  - Intestinal haemorrhage [Recovering/Resolving]
  - Intestinal perforation [Recovering/Resolving]
  - Pneumonia [Unknown]
  - Suicidal ideation [Not Recovered/Not Resolved]
  - Type 2 diabetes mellitus [Not Recovered/Not Resolved]
  - Aortic surgery [Unknown]
  - Heart valve operation [Unknown]
  - Thrombosis [Unknown]
  - Movement disorder [Not Recovered/Not Resolved]
  - Infarction [Unknown]
  - Fatigue [Not Recovered/Not Resolved]
  - Surgery [Unknown]
  - Cataract [Unknown]
  - Intestinal villi atrophy [Unknown]
  - Joint swelling [Not Recovered/Not Resolved]
  - Albumin urine present [Unknown]
  - Post procedural fever [Unknown]
  - Burning sensation [Unknown]
  - Haemoglobin abnormal [Unknown]
  - Quality of life decreased [Unknown]
  - Hypertension [Not Recovered/Not Resolved]
  - Pain [Not Recovered/Not Resolved]
  - Myalgia [Not Recovered/Not Resolved]
  - Vomiting [Unknown]
  - Diarrhoea [Unknown]
  - Arthralgia [Not Recovered/Not Resolved]
  - Pain in extremity [Not Recovered/Not Resolved]
  - Back pain [Not Recovered/Not Resolved]
  - Insomnia [Not Recovered/Not Resolved]
  - Pyrexia [Not Recovered/Not Resolved]
  - Malaise [Not Recovered/Not Resolved]
  - Urticaria [Not Recovered/Not Resolved]
  - Pruritus [Unknown]
  - Fall [Unknown]
  - Haemorrhoids [Unknown]
  - Anal haemorrhage [Unknown]
  - Product prescribing issue [Unknown]

NARRATIVE: CASE EVENT DATE: 20080101
